FAERS Safety Report 16186452 (Version 1)
Quarter: 2019Q2

REPORT INFORMATION
  Report Type: Spontaneous
  Country: CN (occurrence: CN)
  Receive Date: 20190411
  Receipt Date: 20190411
  Transmission Date: 20190711
  Serious: Yes (Other)
  Sender: FDA-Public Use
  Company Number: PHHY2019CN083615

PATIENT

DRUGS (1)
  1. VOLTAREN [Suspect]
     Active Substance: DICLOFENAC SODIUM
     Indication: PAIN IN EXTREMITY
     Dosage: 3 DF, UNK
     Route: 048
     Dates: start: 20190314

REACTIONS (2)
  - Chromaturia [Unknown]
  - Urinary retention [Unknown]

NARRATIVE: CASE EVENT DATE: 20190314
